FAERS Safety Report 5567379-9 (Version None)
Quarter: 2007Q4

REPORT INFORMATION
  Report Type: 
  Country: None (occurrence: None)
  Receive Date: 20071130
  Receipt Date: 20070809
  Transmission Date: 20080405
  Serious: No
  Sender: FDA-Public Use
  Company Number: US200708002547

PATIENT
  Age: 73 Year
  Sex: Female

DRUGS (4)
  1. BYETTA [Suspect]
     Indication: INSULIN-REQUIRING TYPE II DIABETES MELLITUS
     Dosage: 5 UG, 2/D, SUBCUTANEOUS;  10 UG, 2/D, SUBCUTANEOUS;  10 UG, EACH MORNING, SUBCUTANEOUS
     Route: 058
     Dates: end: 20070701
  2. BYETTA [Suspect]
     Indication: INSULIN-REQUIRING TYPE II DIABETES MELLITUS
     Dosage: 5 UG, 2/D, SUBCUTANEOUS;  10 UG, 2/D, SUBCUTANEOUS;  10 UG, EACH MORNING, SUBCUTANEOUS
     Route: 058
     Dates: start: 20051101
  3. HUMULIN N [Concomitant]
  4. HUMALOG [Concomitant]

REACTIONS (4)
  - BLOOD GLUCOSE INCREASED [None]
  - CONSTIPATION [None]
  - NAUSEA [None]
  - VOMITING [None]
